FAERS Safety Report 23231132 (Version 1)
Quarter: 2023Q4

REPORT INFORMATION
  Report Type: Spontaneous
  Country: DE (occurrence: DE)
  Receive Date: 20231127
  Receipt Date: 20231127
  Transmission Date: 20240110
  Serious: Yes (Other)
  Sender: FDA-Public Use
  Company Number: DE-SUN PHARMACEUTICAL INDUSTRIES LTD-2023R1-420744

PATIENT
  Age: 36 Year
  Sex: Female

DRUGS (1)
  1. METHYLDOPA [Suspect]
     Active Substance: METHYLDOPA
     Indication: Hypertension
     Route: 065

REACTIONS (3)
  - Autoimmune haemolytic anaemia [Unknown]
  - Live birth [Unknown]
  - Exposure during pregnancy [Unknown]
